FAERS Safety Report 23932361 (Version 3)
Quarter: 2024Q2

REPORT INFORMATION
  Report Type: Spontaneous
  Country: IN (occurrence: IN)
  Receive Date: 20240603
  Receipt Date: 20240613
  Transmission Date: 20240716
  Serious: Yes (Other)
  Sender: FDA-Public Use
  Company Number: IN-PFIZER INC-PV202200010828

PATIENT
  Age: 39 Year
  Sex: Female
  Weight: 69.8 kg

DRUGS (7)
  1. LORLATINIB [Suspect]
     Active Substance: LORLATINIB
     Indication: Non-small cell lung cancer metastatic
     Dosage: 75 MG, 1X/DAY
     Route: 048
  2. LORLATINIB [Suspect]
     Active Substance: LORLATINIB
     Dosage: 100 MG, 1X/DAY
     Route: 048
  3. FOLVITE [Concomitant]
     Active Substance: FOLIC ACID
     Dosage: 5 MG, 1X/DAY
  4. TORSEMIDE [Concomitant]
     Active Substance: TORSEMIDE
     Dosage: 10 MG, 2X/DAY
  5. CALCIUM LACTATE/FERROUS GLUCONATE/FOLIC ACID/VITAMIN B12 NOS [Concomitant]
     Dosage: 1 DF, 1X/DAY
  6. CALCIUM CARBONATE\CHOLECALCIFEROL [Concomitant]
     Active Substance: CALCIUM CARBONATE\CHOLECALCIFEROL
     Dosage: 1 DF, AS NEEDED
  7. LOOZ [Concomitant]
     Dosage: 20 ML, AS NEEDED

REACTIONS (17)
  - Nephrolithiasis [Unknown]
  - Low density lipoprotein increased [Unknown]
  - Blood thyroid stimulating hormone increased [Unknown]
  - Blood urea increased [Unknown]
  - Varicose vein [Unknown]
  - Blood cholesterol increased [Unknown]
  - Oedema [Unknown]
  - Haemoglobin decreased [Unknown]
  - Blood triglycerides increased [Unknown]
  - Protein urine present [Unknown]
  - Blood urine present [Unknown]
  - Prothrombin time prolonged [Unknown]
  - Blood pressure increased [Unknown]
  - Granuloma [Recovered/Resolved]
  - Glucose urine [Unknown]
  - Hepatic steatosis [Unknown]
  - Product prescribing error [Unknown]

NARRATIVE: CASE EVENT DATE: 20220922
